FAERS Safety Report 19303408 (Version 2)
Quarter: 2021Q2

REPORT INFORMATION
  Report Type: Spontaneous
  Country: CZ (occurrence: CZ)
  Receive Date: 20210525
  Receipt Date: 20210622
  Transmission Date: 20210717
  Serious: Yes (Hospitalization)
  Sender: FDA-Public Use
  Company Number: CZ-MYLANLABS-2021M1029965

PATIENT
  Age: 33 Year
  Sex: Female

DRUGS (6)
  1. ADVIL COLD + FLU /01050201/ [Suspect]
     Active Substance: IBUPROFEN\PSEUDOEPHEDRINE HYDROCHLORIDE
     Indication: PRODUCT USED FOR UNKNOWN INDICATION
  2. ALPRAZOLAM. [Concomitant]
     Active Substance: ALPRAZOLAM
     Dosage: UNK, PM (AT NIGHT)
  3. IBUPROFEN. [Suspect]
     Active Substance: IBUPROFEN
     Indication: HEADACHE
  4. VALERIANA OFFICINALE [Concomitant]
     Dosage: UNK, PM (AT NIGHT)
     Route: 048
  5. IBUPROFEN. [Suspect]
     Active Substance: IBUPROFEN
     Indication: BACK PAIN
     Dosage: UNK (HIGH DOSES)
  6. PSEUDOEPHEDRINE. [Concomitant]
     Active Substance: PSEUDOEPHEDRINE HYDROCHLORIDE
     Dosage: UNK (HIGH DOSES)

REACTIONS (4)
  - Renal failure [Recovered/Resolved]
  - Renal tubular necrosis [Recovered/Resolved]
  - Overdose [Unknown]
  - Nephropathy toxic [Recovered/Resolved]
